FAERS Safety Report 21812355 (Version 8)
Quarter: 2024Q1

REPORT INFORMATION
  Report Type: Spontaneous
  Country: US (occurrence: US)
  Receive Date: 20230103
  Receipt Date: 20240318
  Transmission Date: 20240409
  Serious: No
  Sender: FDA-Public Use
  Company Number: US-PFIZER INC-PV202200129625

PATIENT
  Age: 63 Year
  Sex: Female

DRUGS (2)
  1. XELJANZ [Suspect]
     Active Substance: TOFACITINIB CITRATE
     Indication: Rheumatoid arthritis
     Dosage: 5 MG, 2X/DAY
     Route: 048
  2. XELJANZ [Suspect]
     Active Substance: TOFACITINIB CITRATE
     Dosage: 5 MG, DAILY
     Route: 048

REACTIONS (11)
  - Malaise [Unknown]
  - Product prescribing error [Unknown]
  - Pain [Unknown]
  - Musculoskeletal stiffness [Unknown]
  - Stress [Unknown]
  - Bone loss [Unknown]
  - Arthralgia [Unknown]
  - Joint swelling [Unknown]
  - Myalgia [Unknown]
  - Hand deformity [Unknown]
  - Loss of personal independence in daily activities [Unknown]
